FAERS Safety Report 25219213 (Version 2)
Quarter: 2025Q2

REPORT INFORMATION
  Report Type: Spontaneous
  Country: US (occurrence: US)
  Receive Date: 20250421
  Receipt Date: 20250421
  Transmission Date: 20250716
  Serious: Yes (Other)
  Sender: SANOFI AVENTIS
  Company Number: US-SA-2025SA106099

PATIENT
  Sex: Male

DRUGS (3)
  1. LANTUS SOLOSTAR [Suspect]
     Active Substance: INSULIN GLARGINE
     Indication: Type 2 diabetes mellitus
     Dosage: 50 IU, HS
     Route: 065
     Dates: start: 2021
  2. INSULIN LISPRO [Suspect]
     Active Substance: INSULIN LISPRO
  3. TRULICITY [Suspect]
     Active Substance: DULAGLUTIDE

REACTIONS (1)
  - Shock hypoglycaemic [Unknown]
